FAERS Safety Report 7771458-5 (Version None)
Quarter: 2011Q3

REPORT INFORMATION
  Report Type: 
  Country: None (occurrence: None)
  Receive Date: 20110922
  Receipt Date: 20101006
  Transmission Date: 20111222
  Serious: No
  Sender: FDA-Public Use
  Company Number: US-ASTRAZENECA-2010SE47143

PATIENT
  Age: 50 Year
  Sex: Female
  Weight: 79.4 kg

DRUGS (9)
  1. SEROQUEL [Suspect]
     Indication: BIPOLAR DISORDER
     Route: 048
  2. METFORMIN [Concomitant]
     Indication: DIABETES MELLITUS
  3. IBUPROFEN [Concomitant]
     Indication: ABDOMINAL PAIN UPPER
     Dosage: 400-600 MG
  4. NAPROXEN [Concomitant]
  5. METRONIDAZOLE [Concomitant]
     Indication: VAGINAL INFECTION
  6. NIFEDIPINE [Concomitant]
     Indication: BLOOD PRESSURE
  7. SEROQUEL [Suspect]
     Indication: DEPRESSION
     Route: 048
  8. SEROQUEL [Suspect]
     Indication: MANIA
     Route: 048
  9. GLUCOPHAGE [Concomitant]
     Indication: DIABETES MELLITUS
     Dosage: 500 MG BID

REACTIONS (4)
  - NEUROPATHY PERIPHERAL [None]
  - VAGINAL INFECTION [None]
  - SWELLING [None]
  - BLOOD GLUCOSE INCREASED [None]
